APPROVED DRUG PRODUCT: MEFOXIN IN PLASTIC CONTAINER
Active Ingredient: CEFOXITIN SODIUM
Strength: EQ 40MG BASE/ML
Dosage Form/Route: INJECTABLE;INJECTION
Application: A063182 | Product #002
Applicant: PHARMOBEDIENT CONSULTING LLC
Approved: Jan 25, 1993 | RLD: No | RS: No | Type: DISCN